FAERS Safety Report 25959356 (Version 2)
Quarter: 2025Q4

REPORT INFORMATION
  Report Type: Spontaneous
  Country: EU (occurrence: EU)
  Receive Date: 20251025
  Receipt Date: 20251106
  Transmission Date: 20260118
  Serious: Yes (Death, Life-Threatening, Hospitalization, Other)
  Sender: TEVA
  Company Number: None

PATIENT
  Age: 44 Year
  Sex: Female
  Weight: 60 kg

DRUGS (20)
  1. CLARITHROMYCIN [Interacting]
     Active Substance: CLARITHROMYCIN
     Indication: Product used for unknown indication
     Dosage: TIME INTERVAL: TOTAL: 0-0-2
     Route: 065
     Dates: start: 20250909, end: 20250909
  2. CLARITHROMYCIN [Interacting]
     Active Substance: CLARITHROMYCIN
     Indication: Product used for unknown indication
     Dosage: TIME INTERVAL: TOTAL: 2-0-0
     Route: 065
     Dates: start: 20250910, end: 20250910
  3. DIETARY SUPPLEMENT [Concomitant]
     Active Substance: DIETARY SUPPLEMENT
     Indication: Product used for unknown indication
     Dosage: 2X 2 OVER AT LEAST 5 DAYS
     Route: 065
     Dates: start: 20250911
  4. TRABECTEDIN [Interacting]
     Active Substance: TRABECTEDIN
     Indication: Leiomyosarcoma
     Dosage: TIME INTERVAL: TOTAL: 6TH CYCLE
     Route: 065
     Dates: start: 20250910
  5. ELIQUIS [Concomitant]
     Active Substance: APIXABAN
     Indication: Product used for unknown indication
     Dosage: 1-0-0
     Route: 065
  6. TIZANIDINE [Concomitant]
     Active Substance: TIZANIDINE
     Indication: Product used for unknown indication
     Route: 065
  7. LEVOTHYROXINE SODIUM [Concomitant]
     Active Substance: LEVOTHYROXINE SODIUM
     Indication: Product used for unknown indication
     Dosage: 1-0-0
     Route: 065
  8. CALCIUM CARBONATE\CHOLECALCIFEROL [Concomitant]
     Active Substance: CALCIUM CARBONATE\CHOLECALCIFEROL
     Indication: Product used for unknown indication
     Dosage: 500 MG/800 IU
     Route: 065
  9. Novalgin [Concomitant]
     Indication: Product used for unknown indication
     Route: 065
  10. CURCUMIN [Interacting]
     Active Substance: CURCUMIN
     Indication: Product used for unknown indication
     Dosage: TIME INTERVAL: TOTAL: 20-40   - 0 -  20
     Route: 065
     Dates: start: 20250910, end: 20250910
  11. ZYPREXA [Concomitant]
     Active Substance: OLANZAPINE
     Indication: Product used for unknown indication
     Dosage: ORALLY DISINTEGRATING TABLETS
     Route: 065
  12. MILK THISTLE [Interacting]
     Active Substance: MILK THISTLE
     Indication: Product used for unknown indication
     Dosage: 2X2
     Route: 065
     Dates: start: 20250911
  13. MILK THISTLE [Interacting]
     Active Substance: MILK THISTLE
     Indication: Product used for unknown indication
     Dosage: 0 - 0 - 2
     Route: 065
     Dates: start: 20250909, end: 20250909
  14. MILK THISTLE [Interacting]
     Active Substance: MILK THISTLE
     Indication: Product used for unknown indication
     Dosage: 5 -0-5
     Route: 065
     Dates: start: 20250910, end: 20250910
  15. ZOFRAN [Concomitant]
     Active Substance: ONDANSETRON HYDROCHLORIDE
     Indication: Product used for unknown indication
     Route: 065
  16. Paspertin [Concomitant]
     Indication: Product used for unknown indication
     Route: 065
  17. DEXIBUPROFEN [Concomitant]
     Active Substance: DEXIBUPROFEN
     Indication: Product used for unknown indication
     Dosage: 1-0-1 FOR 3 DAYS FOR NOW, SERACTIL FORTE
     Route: 065
  18. CELECOXIB [Interacting]
     Active Substance: CELECOXIB
     Indication: Product used for unknown indication
     Dosage: 2X1
     Route: 065
     Dates: start: 20250907, end: 20250909
  19. XGEVA [Concomitant]
     Active Substance: DENOSUMAB
     Indication: Product used for unknown indication
     Route: 065
     Dates: start: 2023
  20. NEULASTA [Concomitant]
     Active Substance: PEGFILGRASTIM
     Indication: Product used for unknown indication
     Dosage: TIME INTERVAL: TOTAL: INJECTION SOLUTION
     Route: 058
     Dates: start: 20250910

REACTIONS (29)
  - Anuria [Not Recovered/Not Resolved]
  - Pancytopenia [Not Recovered/Not Resolved]
  - Transaminases increased [Not Recovered/Not Resolved]
  - Blood bilirubin abnormal [Not Recovered/Not Resolved]
  - Hypervolaemia [Not Recovered/Not Resolved]
  - Azotaemia [Not Recovered/Not Resolved]
  - Blood lactic acid increased [Not Recovered/Not Resolved]
  - Cardiomyopathy [Not Recovered/Not Resolved]
  - Multiple organ dysfunction syndrome [Fatal]
  - Product prescribing error [Fatal]
  - Faecal vomiting [Not Recovered/Not Resolved]
  - Labelled drug-drug interaction medication error [Fatal]
  - Acute kidney injury [Not Recovered/Not Resolved]
  - Citrobacter infection [Not Recovered/Not Resolved]
  - Inflammatory marker increased [Not Recovered/Not Resolved]
  - Ascites [Not Recovered/Not Resolved]
  - Mechanical ileus [Not Recovered/Not Resolved]
  - Septic shock [Not Recovered/Not Resolved]
  - Acute hepatic failure [Not Recovered/Not Resolved]
  - Pleural effusion [Not Recovered/Not Resolved]
  - Suspected drug-induced liver injury [Not Recovered/Not Resolved]
  - Vasoplegia syndrome [Not Recovered/Not Resolved]
  - Acute respiratory distress syndrome [Not Recovered/Not Resolved]
  - Jejunectomy [Recovered/Resolved]
  - Candida infection [Not Recovered/Not Resolved]
  - Intussusception [Not Recovered/Not Resolved]
  - Generalised oedema [Not Recovered/Not Resolved]
  - Labelled drug-drug interaction issue [Unknown]
  - Thrombosis [Recovered/Resolved]

NARRATIVE: CASE EVENT DATE: 20250916
